FAERS Safety Report 7516782-6 (Version None)
Quarter: 2011Q2

REPORT INFORMATION
  Report Type: 
  Country: None (occurrence: None)
  Receive Date: 20110601
  Receipt Date: 20110526
  Transmission Date: 20111010
  Serious: Yes (Death, Other)
  Sender: FDA-Public Use
  Company Number: GXKR2011DE01871

PATIENT

DRUGS (1)
  1. BROMOCRIPTINE MESYLATE [Suspect]
     Dosage: MATERNAL DOSE: 5 MG/DAY
     Route: 064

REACTIONS (4)
  - ABORTION MISSED [None]
  - FOETAL GROWTH RESTRICTION [None]
  - DRUG EXPOSURE DURING PREGNANCY [None]
  - FOETAL HEART RATE ABNORMAL [None]
